FAERS Safety Report 12847490 (Version 1)
Quarter: 2016Q4

REPORT INFORMATION
  Report Type: Spontaneous
  Country: MX (occurrence: MX)
  Receive Date: 20161014
  Receipt Date: 20161014
  Transmission Date: 20170207
  Serious: Yes (Other)
  Sender: FDA-Public Use
  Company Number: MX-PFIZER INC-2016475871

PATIENT
  Age: 20 Year
  Sex: Female

DRUGS (1)
  1. DEPO-MEDROL [Suspect]
     Active Substance: METHYLPREDNISOLONE ACETATE
     Indication: HYPERSENSITIVITY
     Dosage: 1 DF, UNK
     Route: 030

REACTIONS (8)
  - Urethral intrinsic sphincter deficiency [Unknown]
  - Loss of consciousness [Unknown]
  - Pruritus generalised [Unknown]
  - Hyperhidrosis [Unknown]
  - Urticaria [Unknown]
  - Dyspnoea [Unknown]
  - Bronchospasm [Unknown]
  - Generalised oedema [Unknown]
